FAERS Safety Report 7083608-7 (Version None)
Quarter: 2010Q4

REPORT INFORMATION
  Report Type: 
  Country: None (occurrence: None)
  Receive Date: 20101104
  Receipt Date: 20101027
  Transmission Date: 20110411
  Serious: Yes (Other)
  Sender: FDA-Public Use
  Company Number: US-ROCHE-735961

PATIENT
  Sex: Male
  Weight: 81.6 kg

DRUGS (1)
  1. AVASTIN [Suspect]
     Indication: MACULAR DEGENERATION
     Dosage: DOSE: 1.25MG/0.05ML, FREQUENCY: ONCE, LAST DOSE BEFORE THREE DAYS OF THE EVENT.
     Route: 031
     Dates: start: 20100706

REACTIONS (2)
  - ENDOPHTHALMITIS [None]
  - PRODUCT QUALITY ISSUE [None]
